FAERS Safety Report 4338900-3 (Version None)
Quarter: 2004Q2

REPORT INFORMATION
  Report Type: 
  Country: None (occurrence: None)
  Receive Date: 20040409
  Receipt Date: 20040401
  Transmission Date: 20050107
  Serious: Yes (Hospitalization)
  Sender: FDA-Public Use
  Company Number: 2004203450JP

PATIENT
  Age: 13 Year
  Sex: Male
  Weight: 35.8 kg

DRUGS (10)
  1. GENOTROPIN [Suspect]
     Indication: BODY HEIGHT BELOW NORMAL
     Dosage: 0.7-0.8 MG/DAILY, INTRAMUSCULAR
     Route: 030
     Dates: start: 20020917
  2. MINOMYCIN [Concomitant]
  3. ASTOMIN (DIMEMORFAN PHOSPHATE) [Concomitant]
  4. DIPYRIDAMOLE [Concomitant]
  5. MUCODYNE [Concomitant]
  6. CLARITHROMYCIN [Concomitant]
  7. RIKAVERIN [Concomitant]
  8. PROCATEROL HCL [Concomitant]
  9. HUSCODE (METHYLEPHEDRINE HYDROCHLORIDE-DL) [Suspect]
  10. PRANLUKAST (PRANLUKAST) [Concomitant]

REACTIONS (11)
  - C-REACTIVE PROTEIN INCREASED [None]
  - COUGH [None]
  - CULTURE STOOL POSITIVE [None]
  - DIARRHOEA [None]
  - DYSKINESIA [None]
  - ESCHERICHIA INFECTION [None]
  - GROWTH HORMONE DEFICIENCY [None]
  - HYPERREFLEXIA [None]
  - HYPOAESTHESIA [None]
  - NAUSEA [None]
  - TREMOR [None]
